FAERS Safety Report 12509656 (Version 10)
Quarter: 2016Q4

REPORT INFORMATION
  Report Type: Report from Study
  Country: US (occurrence: US)
  Receive Date: 20160629
  Receipt Date: 20161017
  Transmission Date: 20170207
  Serious: Yes (Hospitalization, Other)
  Sender: FDA-Public Use
  Company Number: US-JNJFOC-20160603847

PATIENT
  Age: 70 Year
  Sex: Male
  Weight: 108 kg

DRUGS (15)
  1. IMBRUVICA [Suspect]
     Active Substance: IBRUTINIB
     Indication: CHRONIC LYMPHOCYTIC LEUKAEMIA
     Route: 048
     Dates: start: 20160623, end: 20160723
  2. LIPITOR [Concomitant]
     Active Substance: ATORVASTATIN CALCIUM
     Indication: BLOOD CHOLESTEROL
     Route: 048
  3. ZOFRAN [Concomitant]
     Active Substance: ONDANSETRON HYDROCHLORIDE
     Indication: NAUSEA
     Dosage: 8 MG, TID, EVERY EIGHT HOURS PRN
  4. ALLOPURINOL. [Concomitant]
     Active Substance: ALLOPURINOL
     Indication: GOUT
     Route: 048
  5. ACYCLOVIR. [Concomitant]
     Active Substance: ACYCLOVIR
     Indication: HERPES ZOSTER
     Route: 048
  6. ALOE VERA [Concomitant]
     Active Substance: ALOE VERA LEAF
     Indication: HERPES ZOSTER
  7. ACYCLOVIR. [Concomitant]
     Active Substance: ACYCLOVIR
     Indication: HERPES ZOSTER
     Route: 048
  8. MUCINEX D [Concomitant]
     Active Substance: GUAIFENESIN\PSEUDOEPHEDRINE HYDROCHLORIDE
     Dosage: 60 MG-600 MG TABLET EXTENDED RELEASE, ONE PO BID
     Route: 048
  9. IMBRUVICA [Suspect]
     Active Substance: IBRUTINIB
     Indication: CHRONIC LYMPHOCYTIC LEUKAEMIA
     Route: 048
  10. IMBRUVICA [Suspect]
     Active Substance: IBRUTINIB
     Indication: CHRONIC LYMPHOCYTIC LEUKAEMIA
     Route: 048
     Dates: start: 20160621, end: 20160724
  11. CLARITIN [Concomitant]
     Active Substance: LORATADINE
     Route: 048
  12. IMBRUVICA [Suspect]
     Active Substance: IBRUTINIB
     Indication: CHRONIC LYMPHOCYTIC LEUKAEMIA
     Route: 048
     Dates: start: 20160803
  13. IMBRUVICA [Suspect]
     Active Substance: IBRUTINIB
     Indication: CHRONIC LYMPHOCYTIC LEUKAEMIA
     Route: 048
     Dates: start: 20160517, end: 20160529
  14. PERCOCET [Concomitant]
     Active Substance: ACETAMINOPHEN\OXYCODONE HYDROCHLORIDE
     Indication: PAIN
     Dosage: 5 MG- 325 MG, ONE PO EVERY SIX HOURS (QID) PRN PAIN
  15. LASIX [Concomitant]
     Active Substance: FUROSEMIDE
     Dosage: 20 MG, QD PRN, BASED ON SWELLING
     Route: 048

REACTIONS (20)
  - Abdominal distension [Recovered/Resolved]
  - Arthralgia [Not Recovered/Not Resolved]
  - Cough [Not Recovered/Not Resolved]
  - Medical device site infection [Unknown]
  - Weight increased [Unknown]
  - Hydrocele [Recovering/Resolving]
  - Acne [Not Recovered/Not Resolved]
  - Muscle swelling [Not Recovered/Not Resolved]
  - Dyspnoea [Unknown]
  - Initial insomnia [Recovered/Resolved]
  - Rash macular [Not Recovered/Not Resolved]
  - Malignant pleural effusion [Unknown]
  - Musculoskeletal stiffness [Not Recovered/Not Resolved]
  - Pericardial effusion [Unknown]
  - Cardiac tamponade [Recovered/Resolved]
  - Constipation [Recovered/Resolved]
  - Catheter site pain [Recovering/Resolving]
  - Joint swelling [Not Recovered/Not Resolved]
  - Headache [Unknown]
  - Myalgia [Not Recovered/Not Resolved]

NARRATIVE: CASE EVENT DATE: 2016
